FAERS Safety Report 4299480-4 (Version None)
Quarter: 2004Q1

REPORT INFORMATION
  Report Type: 
  Country: None (occurrence: None)
  Receive Date: 20040219
  Receipt Date: 20040203
  Transmission Date: 20041129
  Serious: Yes (Hospitalization)
  Sender: FDA-Public Use
  Company Number: FR-GLAXOSMITHKLINE-B0321931A

PATIENT
  Age: 28 Year
  Sex: Male

DRUGS (3)
  1. ZINNAT [Suspect]
     Indication: INFECTION
     Dosage: 500MG SINGLE DOSE
     Route: 048
     Dates: start: 20031216, end: 20031216
  2. ORBENIN CAP [Suspect]
     Indication: INFECTION
     Dosage: 500MG SINGLE DOSE
     Route: 048
     Dates: start: 20031216, end: 20031216
  3. PENTACARINAT [Suspect]
     Indication: CUTANEOUS LEISHMANIASIS
     Dosage: 300MG SINGLE DOSE
     Route: 030
     Dates: start: 20031215, end: 20031215

REACTIONS (13)
  - ALANINE AMINOTRANSFERASE INCREASED [None]
  - BODY TEMPERATURE INCREASED [None]
  - COAGULATION FACTOR IX LEVEL DECREASED [None]
  - COAGULATION FACTOR VII LEVEL DECREASED [None]
  - COAGULATION FACTOR X LEVEL DECREASED [None]
  - EOSINOPHILIA [None]
  - PROTHROMBIN LEVEL DECREASED [None]
  - PRURITUS [None]
  - PURPURA [None]
  - PYREXIA [None]
  - RASH FOLLICULAR [None]
  - RASH PAPULAR [None]
  - TOXIC SKIN ERUPTION [None]
